FAERS Safety Report 7898398-5 (Version None)
Quarter: 2011Q4

REPORT INFORMATION
  Report Type: 
  Country: None (occurrence: None)
  Receive Date: 20111103
  Receipt Date: 20111020
  Transmission Date: 20120403
  Serious: Yes (Other)
  Sender: FDA-Public Use
  Company Number: OMPQ-NO-1110S-1265

PATIENT
  Sex: 0
  Weight: 2.454 kg

DRUGS (1)
  1. OMNIPAQUE 70 [Suspect]
     Indication: DEEP VEIN THROMBOSIS
     Dosage: 122 ML, SINGLE DOSE, ONCE

REACTIONS (3)
  - CAESAREAN SECTION [None]
  - FOETAL EXPOSURE DURING PREGNANCY [None]
  - TRANSIENT TACHYPNOEA OF THE NEWBORN [None]
